FAERS Safety Report 25763442 (Version 2)
Quarter: 2025Q3

REPORT INFORMATION
  Report Type: Spontaneous
  Country: US (occurrence: US)
  Receive Date: 20250905
  Receipt Date: 20250916
  Transmission Date: 20251021
  Serious: Yes (Other)
  Sender: ELI LILLY AND COMPANY
  Company Number: US-ELI_LILLY_AND_COMPANY-US202508028588

PATIENT
  Age: 60 Year
  Sex: Male

DRUGS (7)
  1. EMGALITY [Suspect]
     Active Substance: GALCANEZUMAB-GNLM
     Indication: Headache
     Route: 058
     Dates: start: 20250825
  2. EMGALITY [Suspect]
     Active Substance: GALCANEZUMAB-GNLM
     Indication: Migraine
     Route: 065
  3. MOUNJARO [Concomitant]
     Active Substance: TIRZEPATIDE
     Indication: Diabetes mellitus
     Route: 065
  4. AMLODIPINE [Concomitant]
     Active Substance: AMLODIPINE BESYLATE
     Indication: Blood pressure abnormal
     Route: 065
  5. LOSARTAN [Concomitant]
     Active Substance: LOSARTAN
     Indication: Blood pressure abnormal
     Route: 065
  6. LABETALOL [Concomitant]
     Active Substance: LABETALOL
     Indication: Blood pressure abnormal
     Route: 065
  7. AMITRIPTYLINE [Concomitant]
     Active Substance: AMITRIPTYLINE
     Indication: Product used for unknown indication
     Route: 065

REACTIONS (17)
  - Blood pressure increased [Unknown]
  - Cardiac flutter [Unknown]
  - Fall [Unknown]
  - Feeling drunk [Unknown]
  - Hangover [Unknown]
  - Feeling hot [Recovering/Resolving]
  - Hyperhidrosis [Recovering/Resolving]
  - Dizziness postural [Recovering/Resolving]
  - Gait disturbance [Unknown]
  - Underdose [Unknown]
  - Hot flush [Unknown]
  - Panic attack [Unknown]
  - Nausea [Unknown]
  - Pain [Unknown]
  - Dyspnoea [Recovering/Resolving]
  - Vertigo [Unknown]
  - Hypersensitivity [Unknown]

NARRATIVE: CASE EVENT DATE: 20250825
